FAERS Safety Report 17874531 (Version 2)
Quarter: 2020Q3

REPORT INFORMATION
  Report Type: Spontaneous
  Country: CN (occurrence: CN)
  Receive Date: 20200609
  Receipt Date: 20200924
  Transmission Date: 20201103
  Serious: Yes (Other)
  Sender: FDA-Public Use
  Company Number: CN-ROCHE-2612731

PATIENT
  Age: 50 Year
  Sex: Female

DRUGS (14)
  1. HERCEPTIN [Suspect]
     Active Substance: TRASTUZUMAB
     Route: 065
     Dates: start: 20180420, end: 20180518
  2. IRINOTECAN [Concomitant]
     Active Substance: IRINOTECAN
     Indication: ADENOCARCINOMA GASTRIC
     Dates: start: 20180123, end: 20180329
  3. XELODA [Suspect]
     Active Substance: CAPECITABINE
     Route: 048
     Dates: start: 20180420, end: 20180518
  4. XELODA [Suspect]
     Active Substance: CAPECITABINE
     Indication: ADENOCARCINOMA GASTRIC
     Route: 048
     Dates: start: 20180123, end: 20180329
  5. IRINOTECAN [Concomitant]
     Active Substance: IRINOTECAN
     Dates: start: 20180420, end: 20180518
  6. OXALIPLATIN. [Concomitant]
     Active Substance: OXALIPLATIN
     Indication: ADENOCARCINOMA GASTRIC
     Dates: start: 20170602, end: 201711
  7. APATINIB [Concomitant]
     Active Substance: APATINIB
     Indication: ADENOCARCINOMA GASTRIC
     Dates: start: 20180723, end: 201812
  8. RECOMBINANT HUMAN ENDOSTATIN [Concomitant]
     Active Substance: ENDOSTATIN
     Indication: ADENOCARCINOMA GASTRIC
     Dosage: ABDOMINAL CAVITY
     Dates: start: 201812, end: 201903
  9. PACLITAXEL. [Concomitant]
     Active Substance: PACLITAXEL
     Indication: ADENOCARCINOMA GASTRIC
     Dates: start: 20170602, end: 201711
  10. HERCEPTIN [Suspect]
     Active Substance: TRASTUZUMAB
     Indication: ADENOCARCINOMA GASTRIC
     Route: 065
     Dates: start: 20180123, end: 20180329
  11. XELODA [Suspect]
     Active Substance: CAPECITABINE
     Route: 048
     Dates: start: 20191125, end: 202004
  12. DOXORUBICIN [Concomitant]
     Active Substance: DOXORUBICIN
     Indication: ADENOCARCINOMA GASTRIC
     Dosage: DOXORUBICIN LIPOSOME
     Dates: start: 20181204, end: 201903
  13. PYROTINIB [Concomitant]
     Active Substance: PYROTINIB
     Indication: ADENOCARCINOMA GASTRIC
     Dates: start: 20191125, end: 202004
  14. FLUOROURACIL. [Concomitant]
     Active Substance: FLUOROURACIL
     Indication: ADENOCARCINOMA GASTRIC
     Dosage: ABDOMINAL CAVITY
     Dates: start: 201812, end: 201903

REACTIONS (6)
  - Diarrhoea [Recovering/Resolving]
  - Marasmus [Unknown]
  - Decreased appetite [Unknown]
  - Ileus [Unknown]
  - Platelet count decreased [Unknown]
  - Dysarthria [Unknown]

NARRATIVE: CASE EVENT DATE: 201902
